FAERS Safety Report 7777596-5 (Version None)
Quarter: 2011Q3

REPORT INFORMATION
  Report Type: 
  Country: None (occurrence: None)
  Receive Date: 20110922
  Receipt Date: 20110907
  Transmission Date: 20111222
  Serious: Yes (Other)
  Sender: FDA-Public Use
  Company Number: JPI-P-017018

PATIENT
  Age: 42 Year
  Sex: Female
  Weight: 68.0396 kg

DRUGS (4)
  1. XYREM [Suspect]
     Indication: CATAPLEXY
     Dosage: (UNKNOWN), ORAL, 7 GM (3.5 GM, 2 IN 1 D), ORAL
     Route: 048
     Dates: start: 20100721
  2. ESTROGEN PATCH [Concomitant]
  3. PREGABALIN [Concomitant]
  4. LORATADINE [Concomitant]

REACTIONS (1)
  - WEIGHT DECREASED [None]
